FAERS Safety Report 12092642 (Version 1)
Quarter: 2016Q1

REPORT INFORMATION
  Report Type: Spontaneous
  Country: JP (occurrence: JP)
  Receive Date: 20160219
  Receipt Date: 20160219
  Transmission Date: 20160526
  Serious: Yes (Other)
  Sender: FDA-Public Use
  Company Number: JP-ACCORD-037999

PATIENT
  Age: 72 Year
  Sex: Male

DRUGS (1)
  1. DOCETAXEL. [Suspect]
     Active Substance: DOCETAXEL
     Indication: CHEMOTHERAPY
     Dosage: ONE COURSE: 25 MG/M^2 PER WEEK FOR 3 WEEKS, FOLLOWED BY 1 WEEK OFF

REACTIONS (3)
  - Hypovolaemic shock [Unknown]
  - Drug ineffective [Unknown]
  - Diarrhoea [Unknown]
